FAERS Safety Report 6940472-1 (Version None)
Quarter: 2010Q3

REPORT INFORMATION
  Report Type: 
  Country: None (occurrence: None)
  Receive Date: 20100825
  Receipt Date: 20100816
  Transmission Date: 20110219
  Serious: Yes (Other)
  Sender: FDA-Public Use
  Company Number: US-JNJFOC-20100805584

PATIENT
  Sex: Female

DRUGS (2)
  1. IMODIUM A-D EZ CHEWS [Suspect]
     Route: 048
  2. IMODIUM A-D EZ CHEWS [Suspect]
     Indication: PRODUCT USED FOR UNKNOWN INDICATION
     Dosage: 2 CHEWS AT ONCE
     Route: 048

REACTIONS (3)
  - ABDOMINAL DISCOMFORT [None]
  - PRODUCT ODOUR ABNORMAL [None]
  - PRODUCT TAMPERING [None]
